FAERS Safety Report 8212709-2 (Version None)
Quarter: 2012Q1

REPORT INFORMATION
  Report Type: 
  Country: None (occurrence: None)
  Receive Date: 20120315
  Receipt Date: 20120312
  Transmission Date: 20120608
  Serious: No
  Sender: FDA-Public Use
  Company Number: US-PFIZER INC-2012038001

PATIENT
  Sex: Female

DRUGS (7)
  1. VITAMIN B COMPLEX CAP [Concomitant]
  2. MULTI-VITAMINS [Concomitant]
  3. NORGESTREL AND ETHINYL ESTRADIOL [Suspect]
  4. CHROMIUM [Concomitant]
  5. NORGESTREL AND ETHINYL ESTRADIOL [Suspect]
  6. MAGNESIUM [Concomitant]
  7. CALCIUM WITH VITAMIN D [Concomitant]

REACTIONS (2)
  - PRODUCT QUALITY ISSUE [None]
  - ABNORMAL WITHDRAWAL BLEEDING [None]
